FAERS Safety Report 9387726 (Version 1)
Quarter: 2013Q3

REPORT INFORMATION
  Report Type: Spontaneous
  Country: US (occurrence: US)
  Receive Date: 20130708
  Receipt Date: 20130708
  Transmission Date: 20140515
  Serious: No
  Sender: FDA-Public Use
  Company Number: US-TEVA-417019USA

PATIENT
  Sex: Female

DRUGS (1)
  1. ACTIQ [Suspect]

REACTIONS (3)
  - Malaise [Unknown]
  - Dysarthria [Unknown]
  - Agitation [Unknown]
